FAERS Safety Report 11693255 (Version 1)
Quarter: 2015Q4

REPORT INFORMATION
  Report Type: Spontaneous
  Country: US (occurrence: None)
  Receive Date: 20151102
  Receipt Date: 20151102
  Transmission Date: 20160304
  Serious: Yes (Other)
  Sender: FDA-Public Use
  Company Number: None

PATIENT
  Age: 55 Year
  Sex: Female
  Weight: 68.04 kg

DRUGS (5)
  1. SIMVISTATIN [Concomitant]
     Active Substance: SIMVASTATIN
  2. VAGIFEM [Suspect]
     Active Substance: ESTRADIOL
     Indication: HORMONE REPLACEMENT THERAPY
     Dosage: 1 PILL 1X/WEEK
     Route: 067
     Dates: start: 20150106, end: 20151004
  3. VITAMIN D [Concomitant]
     Active Substance: CHOLECALCIFEROL
  4. VIT B-100 [Concomitant]
  5. OMEGA 3 [Concomitant]
     Active Substance: OMEGA-3 FATTY ACIDS

REACTIONS (4)
  - Rash [None]
  - Disturbance in attention [None]
  - Amnesia [None]
  - Pruritus [None]

NARRATIVE: CASE EVENT DATE: 20150306
